FAERS Safety Report 11860609 (Version 1)
Quarter: 2015Q4

REPORT INFORMATION
  Report Type: Report from Study
  Country: AT (occurrence: AT)
  Receive Date: 20151222
  Receipt Date: 20151222
  Transmission Date: 20160305
  Serious: Yes (Hospitalization)
  Sender: FDA-Public Use
  Company Number: AT-BIOGEN-2015BI130968

PATIENT
  Sex: Female
  Weight: 70 kg

DRUGS (1)
  1. TYSABRI [Suspect]
     Active Substance: NATALIZUMAB
     Indication: MULTIPLE SCLEROSIS
     Route: 042
     Dates: start: 20090512

REACTIONS (4)
  - Impaired healing [Not Recovered/Not Resolved]
  - Knee operation [Recovered/Resolved]
  - Walking disability [Not Recovered/Not Resolved]
  - Arthrofibrosis [Not Recovered/Not Resolved]

NARRATIVE: CASE EVENT DATE: 2015
